FAERS Safety Report 8499471-3 (Version None)
Quarter: 2012Q3

REPORT INFORMATION
  Report Type: 
  Country: None (occurrence: None)
  Receive Date: 20120710
  Receipt Date: 20120702
  Transmission Date: 20120928
  Serious: Yes (Hospitalization, Other)
  Sender: FDA-Public Use
  Company Number: BR-SANOFI-AVENTIS-2012SA047232

PATIENT
  Sex: Female
  Weight: 58 kg

DRUGS (4)
  1. APIDRA [Suspect]
     Dosage: DOSE: ACCORDING TO GLYCEMIC CONTROL
     Route: 058
     Dates: start: 20070101
  2. INDAPAMIDE [Concomitant]
     Indication: BLOOD PRESSURE
     Route: 048
  3. LANTUS [Suspect]
     Route: 058
     Dates: start: 20070101
  4. SOLOSTAR [Suspect]
     Indication: DEVICE THERAPY
     Dates: start: 20070101

REACTIONS (12)
  - ABASIA [None]
  - BRONCHOPNEUMONIA [None]
  - LABYRINTHITIS [None]
  - UPPER LIMB FRACTURE [None]
  - FEMUR FRACTURE [None]
  - PNEUMONIA [None]
  - ASTHENIA [None]
  - FALL [None]
  - DIARRHOEA [None]
  - DYSPNOEA [None]
  - DIZZINESS [None]
  - BLOOD GLUCOSE INCREASED [None]
